FAERS Safety Report 9234716 (Version 3)
Quarter: 2013Q2

REPORT INFORMATION
  Report Type: Spontaneous
  Country: US (occurrence: US)
  Receive Date: 20130416
  Receipt Date: 20130625
  Transmission Date: 20140414
  Serious: No
  Sender: FDA-Public Use
  Company Number: US-PFIZER INC-2013113759

PATIENT
  Age: 53 Year
  Sex: Female
  Weight: 59.86 kg

DRUGS (13)
  1. LYRICA [Suspect]
     Indication: NEUROPATHY PERIPHERAL
     Dosage: 75 MG, 2X/DAY
     Route: 048
     Dates: start: 201302, end: 201303
  2. LYRICA [Suspect]
     Dosage: 75 MG, 2X/DAY
     Route: 048
     Dates: end: 20130604
  3. PREDNISOLONE [Suspect]
     Indication: NEUROPATHY PERIPHERAL
     Dosage: 10 MG, UNK
     Dates: start: 20130108, end: 2013
  4. CALCIUM CARBONATE [Suspect]
     Dosage: UNK, 1X/DAY
     Dates: start: 201210
  5. FOLIC ACID [Suspect]
     Dosage: 1 MG, 1X/DAY
     Dates: start: 201210
  6. CHOLECALCIFEROL [Suspect]
     Dosage: 100 IU, 1X/DAY
     Dates: start: 201210
  7. VITAMIN B6 [Suspect]
     Dosage: UNK
     Dates: start: 201210
  8. KLOR-CON [Suspect]
     Dosage: UNK, 1X/DAY
     Dates: start: 201210
  9. HYDROCODONE/IBUPROFEN [Concomitant]
     Dosage: 7.5/200 MG, 2X/DAY
  10. VITAMIN B1 [Concomitant]
     Indication: HYPOVITAMINOSIS
     Dosage: 100 MG, 1X/DAY
     Route: 048
  11. VITAMIN B6 [Concomitant]
     Indication: HYPOVITAMINOSIS
     Dosage: 50 MG, 3X/WEEK
     Route: 048
  12. FOLIC ACID [Concomitant]
     Indication: HYPOVITAMINOSIS
     Dosage: 7 MG, 1X/DAY
     Route: 048
  13. POTASSIUM [Concomitant]
     Indication: HYPOVITAMINOSIS
     Dosage: 10 MG, 1X/DAY
     Route: 048

REACTIONS (11)
  - Drug ineffective [Unknown]
  - Insomnia [Recovered/Resolved]
  - Anxiety [Recovered/Resolved]
  - Malaise [Recovered/Resolved]
  - Vomiting [Recovered/Resolved]
  - Feeling abnormal [Unknown]
  - Drug withdrawal syndrome [Recovered/Resolved]
  - Retching [Recovered/Resolved]
  - Tremor [Recovered/Resolved]
  - Activities of daily living impaired [Recovered/Resolved]
  - Fear [Not Recovered/Not Resolved]
